FAERS Safety Report 13355549 (Version 1)
Quarter: 2017Q1

REPORT INFORMATION
  Report Type: Spontaneous
  Country: SE (occurrence: SE)
  Receive Date: 20170321
  Receipt Date: 20170321
  Transmission Date: 20170429
  Serious: Yes (Hospitalization)
  Sender: FDA-Public Use
  Company Number: SE-NOVOPROD-536046

PATIENT
  Age: 51 Year
  Sex: Male

DRUGS (11)
  1. TRADOLAN [Concomitant]
     Active Substance: TRAMADOL
     Dosage: 50 MG, UNK
  2. ALVEDON [Concomitant]
     Active Substance: ACETAMINOPHEN
  3. LOSARTAN AND HYDROCHLOROTHIAZIDE [Concomitant]
     Active Substance: HYDROCHLOROTHIAZIDE\LOSARTAN POTASSIUM
  4. NORGESIC                           /00040301/ [Concomitant]
     Route: 048
  5. SAXENDA [Suspect]
     Active Substance: LIRAGLUTIDE
     Indication: OBESITY
     Dates: start: 20161111, end: 20161202
  6. SALURES [Concomitant]
     Active Substance: BENDROFLUMETHIAZIDE
     Dosage: 5 MG, UNK
     Route: 048
  7. OMEPRAZOLE. [Concomitant]
     Active Substance: OMEPRAZOLE
  8. IMODIUM [Concomitant]
     Active Substance: LOPERAMIDE HYDROCHLORIDE
     Dosage: 2 MG, UNK
     Route: 048
  9. ATENOLOL. [Concomitant]
     Active Substance: ATENOLOL
  10. KALEORID [Concomitant]
     Active Substance: POTASSIUM CHLORIDE
     Dosage: 750 MG, UNK
  11. INOLAXOL                           /00561901/ [Concomitant]
     Route: 048

REACTIONS (1)
  - Acute myocardial infarction [Unknown]

NARRATIVE: CASE EVENT DATE: 20161202
